FAERS Safety Report 25339192 (Version 2)
Quarter: 2025Q3

REPORT INFORMATION
  Report Type: Report from Study
  Country: US (occurrence: US)
  Receive Date: 20250521
  Receipt Date: 20250912
  Transmission Date: 20251021
  Serious: No
  Sender: GLAXOSMITHKLINE
  Company Number: US-GSK-US2025AMR056205

PATIENT

DRUGS (2)
  1. NIRAPARIB [Suspect]
     Active Substance: NIRAPARIB
     Indication: Endometrial cancer
  2. NIRAPARIB [Suspect]
     Active Substance: NIRAPARIB
     Indication: Abdominal hernia

REACTIONS (1)
  - Off label use [Unknown]
